FAERS Safety Report 24847462 (Version 1)
Quarter: 2025Q1

REPORT INFORMATION
  Report Type: Spontaneous
  Country: FR (occurrence: FR)
  Receive Date: 20250116
  Receipt Date: 20250116
  Transmission Date: 20250408
  Serious: Yes (Life-Threatening, Hospitalization, Other)
  Sender: CHEPLAPHARM
  Company Number: None

PATIENT
  Age: 25 Year
  Sex: Male
  Weight: 59 kg

DRUGS (18)
  1. DOXORUBICIN [Suspect]
     Active Substance: DOXORUBICIN
     Indication: Hodgkin^s disease
     Dosage: DAILY DOSE: 60 MILLIGRAM
     Route: 042
     Dates: start: 20241125, end: 20241125
  2. PREDNISOLONE SODIUM METASULFOBENZOATE [Suspect]
     Active Substance: PREDNISOLONE SODIUM METAZOATE
     Dosage: DAILY DOSE: 120 MILLIGRAM
     Dates: start: 20241107
  3. PREDNISOLONE SODIUM METASULFOBENZOATE [Suspect]
     Active Substance: PREDNISOLONE SODIUM METAZOATE
     Dosage: REDUCED TO 40 MG/D?DAILY DOSE: 40 MILLIGRAM
  4. CLONAZEPAM [Suspect]
     Active Substance: CLONAZEPAM
  5. BLEOMYCIN [Suspect]
     Active Substance: BLEOMYCIN SULFATE
     Indication: Hodgkin^s disease
     Dosage: DAILY DOSE: 17.5 MILLIGRAM
     Route: 042
     Dates: start: 20241202, end: 20241202
  6. CYCLOPHOSPHAMIDE [Suspect]
     Active Substance: CYCLOPHOSPHAMIDE
     Indication: Hodgkin^s disease
     Dosage: DAILY DOSE: 2180 MILLIGRAM
     Route: 042
     Dates: start: 20241125, end: 20241125
  7. DACARBAZINE [Suspect]
     Active Substance: DACARBAZINE
     Indication: Hodgkin^s disease
     Dosage: DAILY DOSE: 440 MILLIGRAM
     Route: 042
     Dates: start: 20241126, end: 20241126
  8. DACARBAZINE [Suspect]
     Active Substance: DACARBAZINE
     Indication: Hodgkin^s disease
     Dosage: DAILY DOSE: 440 MILLIGRAM
     Route: 042
     Dates: start: 20241127, end: 20241127
  9. ETOPOSIDE [Suspect]
     Active Substance: ETOPOSIDE
     Indication: Hodgkin^s disease
     Dosage: DAILY DOSE: 350 MILLIGRAM
     Route: 042
     Dates: start: 20241125, end: 20241125
  10. ETOPOSIDE [Suspect]
     Active Substance: ETOPOSIDE
     Indication: Hodgkin^s disease
     Dosage: DAILY DOSE: 350 MILLIGRAM
     Route: 042
     Dates: start: 20241126, end: 20241126
  11. ETOPOSIDE [Suspect]
     Active Substance: ETOPOSIDE
     Indication: Hodgkin^s disease
     Dosage: DAILY DOSE: 350 MILLIGRAM
     Route: 042
     Dates: start: 20241127, end: 20241127
  12. VINCRISTINE SULFATE [Suspect]
     Active Substance: VINCRISTINE SULFATE
     Indication: Hodgkin^s disease
     Dosage: DAILY DOSE: 1.85 MILLIGRAM
     Route: 042
     Dates: start: 20241202, end: 20241202
  13. LOVENOX [Suspect]
     Active Substance: ENOXAPARIN SODIUM
     Dates: start: 20241107
  14. LEVETIRACETAM [Suspect]
     Active Substance: LEVETIRACETAM
  15. LENOGRASTIM [Suspect]
     Active Substance: LENOGRASTIM
     Dates: start: 20241203
  16. LENOGRASTIM [Suspect]
     Active Substance: LENOGRASTIM
     Dates: start: 20241209
  17. DACTINOMYCIN [Suspect]
     Active Substance: DACTINOMYCIN
     Dates: start: 20241125
  18. CANNABIS SATIVA SUBSP. INDICA TOP [Suspect]
     Active Substance: CANNABIS SATIVA SUBSP. INDICA TOP
     Dates: start: 20241213

REACTIONS (9)
  - Encephalitis [Recovering/Resolving]
  - Seizure [Unknown]
  - Agitation [Unknown]
  - Pneumonitis [Unknown]
  - Hepatomegaly [Unknown]
  - Hepatic steatosis [Unknown]
  - Encephalitis herpes [Unknown]
  - Tuberculosis [Unknown]
  - Off label use [Unknown]

NARRATIVE: CASE EVENT DATE: 20241125
